FAERS Safety Report 7098041-1 (Version None)
Quarter: 2010Q4

REPORT INFORMATION
  Report Type: 
  Country: None (occurrence: None)
  Receive Date: 20101112
  Receipt Date: 20101104
  Transmission Date: 20110411
  Serious: Yes (Hospitalization, Other)
  Sender: FDA-Public Use
  Company Number: US-AMGEN-QUU401038

PATIENT

DRUGS (2)
  1. ENBREL [Suspect]
     Indication: RHEUMATOID ARTHRITIS
     Dosage: 25 MG, 2 TIMES/WK
     Route: 058
     Dates: start: 19990401, end: 20100601
  2. ENBREL [Suspect]
     Dates: start: 19990401, end: 20100601

REACTIONS (14)
  - ARTHRALGIA [None]
  - DRUG HYPERSENSITIVITY [None]
  - FOOT DEFORMITY [None]
  - HERPES ZOSTER [None]
  - MUSCULOSKELETAL STIFFNESS [None]
  - MYALGIA [None]
  - ONYCHOMADESIS [None]
  - ORAL INFECTION [None]
  - PAIN IN EXTREMITY [None]
  - RHEUMATOID ARTHRITIS [None]
  - SKIN EXFOLIATION [None]
  - STRESS [None]
  - TOOTH INJURY [None]
  - URTICARIA [None]
